FAERS Safety Report 4995458-3 (Version None)
Quarter: 2006Q2

REPORT INFORMATION
  Report Type: 
  Country: None (occurrence: None)
  Receive Date: 20060504
  Receipt Date: 20060424
  Transmission Date: 20061013
  Serious: Yes (Hospitalization)
  Sender: FDA-Public Use
  Company Number: S06-USA-01633-01

PATIENT
  Age: 57 Year
  Sex: Male

DRUGS (3)
  1. LEXAPRO [Suspect]
     Dosage: 10 MG QD PO
     Route: 048
     Dates: end: 20060301
  2. LEXAPRO [Suspect]
     Dosage: 20 MG QD PO
     Route: 048
     Dates: start: 20060301
  3. DOXEPIN [Suspect]
     Indication: INSOMNIA
     Dosage: 2 TABLET QHS PO
     Route: 048
     Dates: start: 20060301

REACTIONS (7)
  - DEPRESSION [None]
  - DRUG INEFFECTIVE [None]
  - GRAND MAL CONVULSION [None]
  - INSOMNIA [None]
  - MEMORY IMPAIRMENT [None]
  - MOVEMENT DISORDER [None]
  - SPEECH DISORDER [None]
